FAERS Safety Report 7817723-4 (Version None)
Quarter: 2011Q4

REPORT INFORMATION
  Report Type: 
  Country: None (occurrence: None)
  Receive Date: 20111017
  Receipt Date: 20111010
  Transmission Date: 20120403
  Serious: Yes (Other)
  Sender: FDA-Public Use
  Company Number: DK-JNJFOC-20111000315

PATIENT
  Sex: Female

DRUGS (3)
  1. CONCERTA [Suspect]
     Dosage: 36MG IN MORNING AND 18MG IN EVENING
     Route: 065
     Dates: start: 20110228
  2. CONCERTA [Suspect]
     Indication: PRODUCT USED FOR UNKNOWN INDICATION
     Dosage: 54MG IN MORNING AND 18MG IN EVENING
     Route: 065
     Dates: start: 20100901
  3. CONCERTA [Suspect]
     Dosage: 36MG IN MORNING AND 18MG IN EVENING
     Route: 065
     Dates: start: 20100621

REACTIONS (1)
  - INTRAOCULAR PRESSURE INCREASED [None]
